FAERS Safety Report 18887180 (Version 9)
Quarter: 2021Q4

REPORT INFORMATION
  Report Type: Report from Study
  Country: US (occurrence: US)
  Receive Date: 20210212
  Receipt Date: 20211210
  Transmission Date: 20220303
  Serious: No
  Sender: FDA-Public Use
  Company Number: NVSC2021US027942

PATIENT
  Sex: Male

DRUGS (2)
  1. COSENTYX [Suspect]
     Active Substance: SECUKINUMAB
     Indication: Psoriasis
     Dosage: UNK, QMO
     Route: 058
  2. COSENTYX [Suspect]
     Active Substance: SECUKINUMAB
     Indication: Psoriatic arthropathy
     Dosage: UNK
     Route: 058

REACTIONS (6)
  - Peripheral swelling [Unknown]
  - Arthralgia [Unknown]
  - Cough [Recovering/Resolving]
  - Product distribution issue [Unknown]
  - Nasopharyngitis [Unknown]
  - Psoriasis [Unknown]
